FAERS Safety Report 22213115 (Version 2)
Quarter: 2023Q2

REPORT INFORMATION
  Report Type: Spontaneous
  Country: US (occurrence: US)
  Receive Date: 20230414
  Receipt Date: 20230516
  Transmission Date: 20230722
  Serious: Yes (Death, Hospitalization)
  Sender: FDA-Public Use
  Company Number: US-JNJFOC-20230421904

PATIENT
  Sex: Female

DRUGS (2)
  1. TECLISTAMAB [Suspect]
     Active Substance: TECLISTAMAB
     Indication: Plasma cell myeloma
     Route: 065
  2. TECLISTAMAB [Suspect]
     Active Substance: TECLISTAMAB
     Dosage: RECEIVED ONLY THE FIRST STEP-UP DOSE OF TECLISTAMAB
     Route: 065

REACTIONS (3)
  - Plasma cell myeloma [Fatal]
  - Immune effector cell-associated neurotoxicity syndrome [Not Recovered/Not Resolved]
  - Cytokine release syndrome [Recovered/Resolved]
